FAERS Safety Report 20231605 (Version 1)
Quarter: 2021Q4

REPORT INFORMATION
  Report Type: Spontaneous
  Country: US (occurrence: None)
  Receive Date: 20211223
  Receipt Date: 20211223
  Transmission Date: 20220303
  Serious: Yes (Life-Threatening, Hospitalization, Disabling)
  Sender: FDA-Public Use
  Company Number: None

PATIENT
  Age: 32 Year
  Sex: Female
  Weight: 108 kg

DRUGS (1)
  1. INJECTAFER [Suspect]
     Active Substance: FERRIC CARBOXYMALTOSE
     Indication: Anaemia of pregnancy
     Route: 042
     Dates: start: 20200317

REACTIONS (24)
  - Hypersensitivity [None]
  - Pyrexia [None]
  - Chills [None]
  - Diarrhoea [None]
  - Myalgia [None]
  - Headache [None]
  - Dizziness [None]
  - Vitamin B12 decreased [None]
  - Maternal exposure during pregnancy [None]
  - Amniotic fluid volume decreased [None]
  - Premature rupture of membranes [None]
  - Delivery [None]
  - Infantile vomiting [None]
  - Lethargy [None]
  - Poor feeding infant [None]
  - Sepsis neonatal [None]
  - Illness [None]
  - Nausea [None]
  - White blood cell count increased [None]
  - Blood alkaline phosphatase increased [None]
  - Blood albumin decreased [None]
  - Infection [None]
  - Vomiting [None]
  - Pancreas infection [None]

NARRATIVE: CASE EVENT DATE: 20200317
